FAERS Safety Report 11178025 (Version 2)
Quarter: 2015Q2

REPORT INFORMATION
  Report Type: Spontaneous
  Country: NL (occurrence: NL)
  Receive Date: 20150610
  Receipt Date: 20150624
  Transmission Date: 20150821
  Serious: Yes (Hospitalization, Other)
  Sender: FDA-Public Use
  Company Number: NL-ACTELION-A-CH2015-118851

PATIENT
  Age: 27 Year
  Sex: Female
  Weight: 50 kg

DRUGS (3)
  1. AMBRISENTAN [Concomitant]
     Active Substance: AMBRISENTAN
     Indication: PULMONARY ARTERIAL HYPERTENSION
     Dosage: 10 MG, QD
     Route: 048
     Dates: start: 20130502, end: 20150618
  2. VELETRI [Suspect]
     Active Substance: EPOPROSTENOL
     Indication: PULMONARY ARTERIAL HYPERTENSION
     Dosage: 1500 MCG, CONT INFUS
     Route: 042
     Dates: start: 20130402
  3. EVIPLERA [Concomitant]
     Active Substance: EMTRICITABINE\RILPIVIRINE\TENOFOVIR DISOPROXIL FUMARATE
     Indication: HIV INFECTION
     Dosage: UNK, QD
     Route: 048
     Dates: start: 20131031, end: 20150618

REACTIONS (5)
  - Chest pain [Unknown]
  - Cerebrovascular accident [Unknown]
  - Thrombosis in device [Recovered/Resolved with Sequelae]
  - Pulmonary embolism [Unknown]
  - Neurological symptom [Recovered/Resolved]

NARRATIVE: CASE EVENT DATE: 20130621
